FAERS Safety Report 4576532-2 (Version None)
Quarter: 2005Q1

REPORT INFORMATION
  Report Type: 
  Country: None (occurrence: None)
  Receive Date: 20050119
  Receipt Date: 20040504
  Transmission Date: 20050727
  Serious: Yes (Hospitalization)
  Sender: FDA-Public Use
  Company Number: A03200401414

PATIENT
  Age: 75 Year
  Sex: Female
  Weight: 115.2136 kg

DRUGS (10)
  1. PLAVIX [Suspect]
     Indication: ATRIAL FIBRILLATION
     Dosage: 75 MG QD - ORAL
     Route: 048
     Dates: start: 20040301, end: 20040406
  2. PREVACID [Suspect]
     Indication: OSTEOARTHRITIS
     Dosage: ^1 CARD 1 IN 1 WEEK^ - ORAL
     Route: 048
     Dates: start: 20040301, end: 20040401
  3. SERETIDEMITE [Concomitant]
  4. SALBUTAMOL SULFATE [Concomitant]
  5. IPATROPIUM BROMIDE [Concomitant]
  6. FUROSEMIDE [Concomitant]
  7. ISOSORBIDE MONONITRATE [Concomitant]
  8. METOPROLOL [Concomitant]
  9. GLIMEPIRIDE [Concomitant]
  10. DOCUSATE SODIUM [Concomitant]

REACTIONS (3)
  - CARDIAC FAILURE CONGESTIVE [None]
  - HAEMOGLOBIN DECREASED [None]
  - MELAENA [None]
